FAERS Safety Report 9376503 (Version 1)
Quarter: 2013Q3

REPORT INFORMATION
  Report Type: Spontaneous
  Country: CA (occurrence: CA)
  Receive Date: 20130701
  Receipt Date: 20130701
  Transmission Date: 20140515
  Serious: Yes (Hospitalization)
  Sender: FDA-Public Use
  Company Number: CA-ROCHE-1242775

PATIENT
  Age: 7 Year
  Sex: Male

DRUGS (13)
  1. GRANISETRON HYDROCHLORIDE [Suspect]
     Indication: PROPHYLAXIS OF NAUSEA AND VOMITING
     Dosage: 20 UG/KG/DOSE
     Route: 042
  2. HYDROMORPHONE [Concomitant]
     Dosage: CONTROLLED RELEASE
     Route: 048
  3. HYDROMORPHONE [Concomitant]
     Dosage: CONVENTIONAL  RELEASE, AS REQUIRED FOR PAIN
     Route: 048
  4. HYDROXYZINE [Concomitant]
     Route: 048
  5. DIMENHYDRINATE [Concomitant]
     Route: 042
  6. LORAZEPAM [Concomitant]
     Dosage: INTRAVENOUS/ORAL/SOLUTION, AS REQUIRED
     Route: 065
  7. RANITIDINE [Concomitant]
     Route: 048
  8. BISACODYL [Concomitant]
     Dosage: FREQUENCY : Q.H.S. P.R.N
     Route: 048
  9. DOCUSATE [Concomitant]
     Route: 048
  10. ONDANSETRON [Concomitant]
     Indication: PROPHYLAXIS OF NAUSEA AND VOMITING
     Dosage: 5 MG/M2/DOSE
     Route: 048
  11. IFOSFAMIDE [Concomitant]
  12. ETOPOSIDE [Concomitant]
  13. CEFUROXIME [Concomitant]
     Route: 042

REACTIONS (1)
  - Dyskinesia [Unknown]
